FAERS Safety Report 15852478 (Version 1)
Quarter: 2018Q4

REPORT INFORMATION
  Report Type: Spontaneous
  Country: US (occurrence: US)
  Receive Date: 20181226
  Receipt Date: 20181226
  Transmission Date: 20190205
  Serious: No
  Sender: FDA-Public Use
  Company Number: None

PATIENT
  Age: 55 Year
  Sex: Male

DRUGS (1)
  1. LATUDA [Suspect]
     Active Substance: LURASIDONE HYDROCHLORIDE
     Dates: start: 201811, end: 201812

REACTIONS (4)
  - Anxiety [None]
  - Agitation [None]
  - Swelling face [None]
  - Sensitivity of teeth [None]

NARRATIVE: CASE EVENT DATE: 20181226
